FAERS Safety Report 5817149-9 (Version None)
Quarter: 2008Q3

REPORT INFORMATION
  Report Type: 
  Country: None (occurrence: None)
  Receive Date: 20080722
  Receipt Date: 20080714
  Transmission Date: 20090109
  Serious: Yes (Other)
  Sender: FDA-Public Use
  Company Number: US-ROCHE-502796

PATIENT
  Age: 92 Year
  Sex: Female

DRUGS (9)
  1. BONIVA [Suspect]
     Indication: DRUG USE FOR UNKNOWN INDICATION
     Route: 048
     Dates: start: 20070614, end: 20070614
  2. TOPROL-XL [Concomitant]
  3. HYDROCHLOROTHIAZIDE [Concomitant]
  4. ZANTAC [Concomitant]
  5. TUMS [Concomitant]
  6. LISINOPRIL [Concomitant]
     Dosage: REPORTED AS ^LYSINOPRIL^
  7. ASPIRIN [Concomitant]
  8. MULTIVITAMIN WITH VITAMIN D [Concomitant]
  9. VITAMIN D [Concomitant]

REACTIONS (1)
  - ANGIOEDEMA [None]
